FAERS Safety Report 18611754 (Version 1)
Quarter: 2020Q4

REPORT INFORMATION
  Report Type: Spontaneous
  Country: US (occurrence: US)
  Receive Date: 20201212
  Receipt Date: 20201212
  Transmission Date: 20210114
  Serious: Yes (Hospitalization)
  Sender: FDA-Public Use
  Company Number: None

PATIENT
  Sex: Female
  Weight: 56.3 kg

DRUGS (4)
  1. ONCASPAR [Concomitant]
     Active Substance: PEGASPARGASE
  2. CYTARABINE. [Suspect]
     Active Substance: CYTARABINE
  3. DAUNORUBICIN [Concomitant]
     Active Substance: DAUNORUBICIN
  4. VINCRISTINE SULFATE. [Concomitant]
     Active Substance: VINCRISTINE SULFATE

REACTIONS (11)
  - Swelling [None]
  - Staphylococcal infection [None]
  - Soft tissue infection [None]
  - Erythema [None]
  - Infusion site bruising [None]
  - Bacterial infection [None]
  - Haematoma [None]
  - Pyrexia [None]
  - Infection [None]
  - Abscess [None]
  - Pain [None]

NARRATIVE: CASE EVENT DATE: 20201207
